FAERS Safety Report 7445654-0 (Version None)
Quarter: 2011Q2

REPORT INFORMATION
  Report Type: 
  Country: None (occurrence: None)
  Receive Date: 20110429
  Receipt Date: 20110420
  Transmission Date: 20111010
  Serious: Yes (Death, Hospitalization, Other)
  Sender: FDA-Public Use
  Company Number: US-AMGEN-US378784

PATIENT
  Age: 82 Year
  Sex: Male

DRUGS (1)
  1. NPLATE [Suspect]
     Indication: IDIOPATHIC THROMBOCYTOPENIC PURPURA
     Dosage: 10 A?G/KG, UNK
     Dates: start: 20090831, end: 20100101

REACTIONS (4)
  - ANGIOPLASTY [None]
  - THERAPEUTIC RESPONSE DECREASED [None]
  - ANGINA PECTORIS [None]
  - RESPIRATORY FAILURE [None]
